FAERS Safety Report 23063485 (Version 1)
Quarter: 2023Q4

REPORT INFORMATION
  Report Type: Spontaneous
  Country: US (occurrence: US)
  Receive Date: 20231013
  Receipt Date: 20231013
  Transmission Date: 20240110
  Serious: No
  Sender: FDA-Public Use
  Company Number: US-ADAREPHARM-2023-US-000008

PATIENT

DRUGS (1)
  1. KCL [Suspect]
     Active Substance: POTASSIUM CHLORIDE
     Dosage: I STARTED AT 10 MEQ IN FEBRUARY
     Dates: start: 202302

REACTIONS (5)
  - Dizziness [Unknown]
  - Balance disorder [Unknown]
  - Impaired gastric emptying [Unknown]
  - Thinking abnormal [Unknown]
  - Condition aggravated [Unknown]
